FAERS Safety Report 8178836-3 (Version None)
Quarter: 2012Q1

REPORT INFORMATION
  Report Type: 
  Country: None (occurrence: None)
  Receive Date: 20120302
  Receipt Date: 20120215
  Transmission Date: 20120608
  Serious: Yes (Congenital Anomaly, Other)
  Sender: FDA-Public Use
  Company Number: FR-ACCORD-012498

PATIENT

DRUGS (4)
  1. PREDNISONE TAB [Concomitant]
     Route: 064
  2. PERINDOPRIL ERBUMINE [Concomitant]
     Route: 064
  3. HYDROXYCHLOROQUINE SULFATE [Concomitant]
     Route: 064
  4. MYCOPHENOLATE MOFETIL [Suspect]
     Indication: SYSTEMIC LUPUS ERYTHEMATOSUS
     Dosage: MMF EXPOSURE 0-25 WEEKS
     Route: 064

REACTIONS (13)
  - ANOPHTHALMOS [None]
  - MICROSTOMIA [None]
  - DYSMORPHISM [None]
  - MICROGNATHIA [None]
  - FALLOT'S TETRALOGY [None]
  - FOETAL EXPOSURE TIMING UNSPECIFIED [None]
  - MICROGLOSSIA [None]
  - ANOTIA [None]
  - EXTERNAL AUDITORY CANAL ATRESIA [None]
  - POLYDACTYLY [None]
  - RENAL HYPOPLASIA [None]
  - HYPERTELORISM OF ORBIT [None]
  - CONGENITAL NAIL DISORDER [None]
